FAERS Safety Report 17316555 (Version 1)
Quarter: 2020Q1

REPORT INFORMATION
  Report Type: Spontaneous
  Country: JP (occurrence: JP)
  Receive Date: 20200124
  Receipt Date: 20200124
  Transmission Date: 20200409
  Serious: Yes (Other)
  Sender: FDA-Public Use
  Company Number: JP-009507513-2001JPN007634

PATIENT
  Age: 85 Year
  Sex: Male

DRUGS (7)
  1. GLUFAST [Concomitant]
     Active Substance: MITIGLINIDE
     Indication: TYPE 2 DIABETES MELLITUS
     Dosage: 5 MG, TID
     Route: 048
     Dates: start: 20171206, end: 20171215
  2. BASEN [VOGLIBOSE] [Concomitant]
     Active Substance: VOGLIBOSE
     Dosage: 0.3 MG, TID
     Route: 048
     Dates: start: 20170927
  3. BASEN [VOGLIBOSE] [Concomitant]
     Active Substance: VOGLIBOSE
     Dosage: 0.2 MG, TID
     Route: 048
     Dates: start: 20170828, end: 20170926
  4. GLUFAST [Concomitant]
     Active Substance: MITIGLINIDE
     Dosage: 10 MG, BID
     Route: 048
     Dates: start: 20171216
  5. EQUMET [Suspect]
     Active Substance: METFORMIN HYDROCHLORIDE\VILDAGLIPTIN
     Indication: TYPE 2 DIABETES MELLITUS
     Dosage: UNK (1DF: METFORMIN 250MG / VILDAGLIPTIN 50MG), UNK
     Route: 048
     Dates: start: 20160316, end: 20170828
  6. JANUVIA [Suspect]
     Active Substance: SITAGLIPTIN PHOSPHATE
     Indication: TYPE 2 DIABETES MELLITUS
     Dosage: 50 MG, QD
     Route: 048
     Dates: start: 20150527, end: 20170315
  7. AMARYL [Concomitant]
     Active Substance: GLIMEPIRIDE
     Indication: TYPE 2 DIABETES MELLITUS
     Dosage: 1 DF, QD
     Route: 048
     Dates: start: 20150527, end: 20170828

REACTIONS (4)
  - Erythema [Unknown]
  - Pemphigoid [Recovering/Resolving]
  - Dermatitis bullous [Unknown]
  - Blister [Unknown]

NARRATIVE: CASE EVENT DATE: 201607
